FAERS Safety Report 4392824-4 (Version None)
Quarter: 2004Q3

REPORT INFORMATION
  Report Type: 
  Country: None (occurrence: None)
  Receive Date: 20040702
  Receipt Date: 20040317
  Transmission Date: 20050211
  Serious: Yes (Other)
  Sender: FDA-Public Use
  Company Number: 2004UW05202

PATIENT
  Sex: Male

DRUGS (1)
  1. CRESTOR [Suspect]
     Dosage: 10 MG PO

REACTIONS (4)
  - ASTHENIA [None]
  - FATIGUE [None]
  - FEELING ABNORMAL [None]
  - NAUSEA [None]
